FAERS Safety Report 5425338-0 (Version None)
Quarter: 2007Q3

REPORT INFORMATION
  Report Type: 
  Country: None (occurrence: None)
  Receive Date: 20070824
  Receipt Date: 20070817
  Transmission Date: 20080115
  Serious: Yes (Other)
  Sender: FDA-Public Use
  Company Number: CH-SHR-CH-2007-031488

PATIENT
  Sex: Female

DRUGS (4)
  1. YASMIN [Suspect]
     Dosage: UNK, UNK
     Dates: end: 20051007
  2. FLUVOXAMINE MALEATE [Suspect]
     Dates: start: 20050907, end: 20060501
  3. CLONAZEPAM [Suspect]
     Dates: start: 20050907, end: 20060501
  4. SEROQUEL [Suspect]
     Dates: start: 20050907, end: 20060501

REACTIONS (1)
  - NEONATAL RESPIRATORY DEPRESSION [None]
